FAERS Safety Report 8677433 (Version 4)
Quarter: 2012Q4

REPORT INFORMATION
  Report Type: 
  Country: DE (occurrence: JP)
  Receive Date: 20120723
  Receipt Date: 20120913
  Transmission Date: 20130627
  Serious: Yes (Other)
  Sender: FDA-Public Use
  Company Number: JP-BRISTOL-MYERS SQUIBB COMPANY-16778938

PATIENT
  Age: 50 Year
  Sex: Male
  Weight: 55 kg

DRUGS (1)
  1. ERBITUX SOLN FOR INF 5MG/ML [Suspect]
     Indication: RECTAL CANCER
     Dosage: Last inf on 10Jul2012 with dose 390mg
3-3Jul12:630mg
10-10Jul12:390mg
     Route: 042
     Dates: start: 20120703, end: 20120710

REACTIONS (1)
  - Gastrointestinal haemorrhage [Recovering/Resolving]
